FAERS Safety Report 8040177 (Version 2)
Quarter: 2013Q1

REPORT INFORMATION
  Report Type: Spontaneous
  Country: GB (occurrence: None)
  Receive Date: 20110630
  Receipt Date: 20130208
  Transmission Date: 20140127
  Serious: Yes (Hospitalization)
  Sender: FDA-Public Use
  Company Number: 2011AP001251

PATIENT
  Age: 50 Year
  Sex: Female

DRUGS (2)
  1. AMLODIPINE BESYLATE [Suspect]
     Dosage: 770 MG
  2. LOSARTAN POTASSIUM [Suspect]
     Dosage: 16640 MG

REACTIONS (14)
  - Overdose [None]
  - HYPOTENSION [None]
  - BLOOD GLUCOSE INCREASED [None]
  - ANURIA [None]
  - PULMONARY OEDEMA [None]
  - HYPOXIA [None]
  - VOMITING [None]
  - NO THERAPEUTIC RESPONSE [None]
  - METABOLIC ACIDOSIS [None]
  - RENAL IMPAIRMENT [None]
  - BLOOD UREA INCREASED [None]
  - BLOOD CREATININE INCREASED [None]
  - HYPERKALAEMIA [None]
  - TOXICITY TO VARIOUS AGENTS [None]
